FAERS Safety Report 7853605-X (Version None)
Quarter: 2011Q4

REPORT INFORMATION
  Report Type: 
  Country: None (occurrence: None)
  Receive Date: 20111026
  Receipt Date: 20111024
  Transmission Date: 20120403
  Serious: Yes (Other)
  Sender: FDA-Public Use
  Company Number: US-PFIZER INC-2011258229

PATIENT
  Sex: Female
  Weight: 91 kg

DRUGS (6)
  1. FLECTOR [Suspect]
     Indication: PAIN
     Dosage: UNK
     Route: 062
     Dates: start: 20111022, end: 20111023
  2. LISINOPRIL [Concomitant]
     Indication: HYPERTENSION
     Dosage: UNK
  3. BENTYL [Concomitant]
     Indication: GASTROOESOPHAGEAL REFLUX DISEASE
     Dosage: UNK
  4. PROTONIX [Concomitant]
     Indication: GASTROOESOPHAGEAL REFLUX DISEASE
     Dosage: UNK
  5. CRESTOR [Concomitant]
     Indication: BLOOD CHOLESTEROL INCREASED
     Dosage: UNK
  6. LORAZEPAM [Concomitant]
     Indication: ANXIETY
     Dosage: UNK

REACTIONS (5)
  - DIARRHOEA [None]
  - PRURITUS GENERALISED [None]
  - PAIN [None]
  - INFLUENZA [None]
  - PERIORBITAL OEDEMA [None]
